FAERS Safety Report 22376773 (Version 1)
Quarter: 2023Q2

REPORT INFORMATION
  Report Type: Spontaneous
  Country: US (occurrence: US)
  Receive Date: 20230528
  Receipt Date: 20230528
  Transmission Date: 20230721
  Serious: No
  Sender: FDA-Public Use
  Company Number: US-BRISTOL-MYERS SQUIBB COMPANY-2023-075187

PATIENT
  Age: 74 Year
  Sex: Female
  Weight: 63.5 kg

DRUGS (3)
  1. REVLIMID [Suspect]
     Active Substance: LENALIDOMIDE
     Indication: Plasma cell myeloma
     Dosage: FREQUENCY: ONCE DAILY FOR 21 DAYS AND 7 DAYS OFF
     Route: 048
     Dates: start: 202210
  2. REVLIMID [Suspect]
     Active Substance: LENALIDOMIDE
     Route: 048
  3. REVLIMID [Suspect]
     Active Substance: LENALIDOMIDE
     Route: 048

REACTIONS (1)
  - Anaemia [Unknown]
